FAERS Safety Report 11914972 (Version 1)
Quarter: 2016Q1

REPORT INFORMATION
  Report Type: Spontaneous
  Country: JP (occurrence: JP)
  Receive Date: 20160113
  Receipt Date: 20160113
  Transmission Date: 20160526
  Serious: Yes (Other)
  Sender: FDA-Public Use
  Company Number: PHJP2015JP023665

PATIENT
  Age: 54 Year
  Sex: Male

DRUGS (1)
  1. NEORAL [Suspect]
     Active Substance: CYCLOSPORINE
     Indication: NEPHROTIC SYNDROME
     Dosage: 75 MG, QD
     Route: 048
     Dates: start: 20151008

REACTIONS (2)
  - Myelocyte percentage increased [Unknown]
  - Metamyelocyte percentage increased [Unknown]

NARRATIVE: CASE EVENT DATE: 20151215
